FAERS Safety Report 4295632-8 (Version None)
Quarter: 2004Q1

REPORT INFORMATION
  Report Type: 
  Country: None (occurrence: None)
  Receive Date: 20040216
  Receipt Date: 20030731
  Transmission Date: 20041129
  Serious: No
  Sender: FDA-Public Use
  Company Number: US-GLAXOSMITHKLINE-A0419498A

PATIENT
  Age: 52 Year
  Sex: Female
  Weight: 60.5 kg

DRUGS (1)
  1. PAXIL [Suspect]
     Dates: end: 20030101

REACTIONS (1)
  - ABDOMINAL PAIN [None]
